FAERS Safety Report 5254546-7 (Version None)
Quarter: 2007Q1

REPORT INFORMATION
  Report Type: 
  Country: None (occurrence: None)
  Receive Date: 20070302
  Receipt Date: 20070228
  Transmission Date: 20070707
  Serious: Yes (Hospitalization)
  Sender: FDA-Public Use
  Company Number: FR-BRISTOL-MYERS SQUIBB COMPANY-13696737

PATIENT
  Age: 47 Year
  Sex: Female
  Weight: 63 kg

DRUGS (2)
  1. COUMADIN [Suspect]
     Route: 048
     Dates: start: 20061207, end: 20070125
  2. PREVISCAN [Suspect]
     Route: 048

REACTIONS (3)
  - LYMPHOPENIA [None]
  - NECROSIS [None]
  - VASCULAR PURPURA [None]
